FAERS Safety Report 8055987-5 (Version None)
Quarter: 2011Q4

REPORT INFORMATION
  Report Type: 
  Country: None (occurrence: None)
  Receive Date: 20111219
  Receipt Date: 20110519
  Transmission Date: 20120403
  Serious: Yes (Hospitalization, Disabling)
  Sender: FDA-Public Use
  Company Number: WAES 1105USA03181

PATIENT
  Age: 53 Year
  Sex: Female
  Weight: 76.2043 kg

DRUGS (9)
  1. FOSAMAX [Concomitant]
  2. AZATHIOPRINE [Concomitant]
  3. HYDROCHLOROTHIAZIDE [Concomitant]
  4. METFORMIN HCL [Concomitant]
  5. CRESTOR [Concomitant]
  6. COZAAR [Concomitant]
  7. JANUVIA [Suspect]
     Indication: DIABETES MELLITUS
     Dosage: PO
     Route: 048
     Dates: start: 20110414, end: 20110518
  8. PRECOSE [Concomitant]
  9. PREDNISONE TAB [Concomitant]

REACTIONS (1)
  - PANCREATITIS [None]
